FAERS Safety Report 5816526-X (Version None)
Quarter: 2008Q3

REPORT INFORMATION
  Report Type: 
  Country: None (occurrence: None)
  Receive Date: 20080717
  Receipt Date: 20080717
  Transmission Date: 20090109
  Serious: Yes (Other)
  Sender: FDA-Public Use
  Company Number: None

PATIENT
  Age: 51 Year
  Sex: Female
  Weight: 90.7194 kg

DRUGS (4)
  1. CLINDAMYCIN 150 MG GREENSTONE LTD [Suspect]
     Indication: ORAL SURGERY
     Dosage: 150 MG EVERY 6 HOURS DENTAL
     Route: 004
     Dates: start: 20080522, end: 20080529
  2. CLINDAMYCIN 150 MG GREENSTONE LTD [Suspect]
     Indication: TOOTH ABSCESS
     Dosage: 150 MG EVERY 6 HOURS DENTAL
     Route: 004
     Dates: start: 20080522, end: 20080529
  3. CLINDAMYCIN 150 MG GREENSTONE LTD [Suspect]
     Indication: ORAL SURGERY
     Dosage: 150 MG EVERY 6 HOURS DENTAL
     Route: 004
     Dates: start: 20080710, end: 20080716
  4. CLINDAMYCIN 150 MG GREENSTONE LTD [Suspect]
     Indication: TOOTH ABSCESS
     Dosage: 150 MG EVERY 6 HOURS DENTAL
     Route: 004
     Dates: start: 20080710, end: 20080716

REACTIONS (2)
  - PRURITUS [None]
  - RASH [None]
